FAERS Safety Report 23338661 (Version 2)
Quarter: 2024Q1

REPORT INFORMATION
  Report Type: Spontaneous
  Country: CA (occurrence: CA)
  Receive Date: 20231226
  Receipt Date: 20240103
  Transmission Date: 20240410
  Serious: Yes (Other)
  Sender: FDA-Public Use
  Company Number: CA-PFIZER INC-PV202300191798

PATIENT
  Age: 34 Year
  Sex: Female
  Weight: 62 kg

DRUGS (7)
  1. RUXIENCE [Suspect]
     Active Substance: RITUXIMAB-PVVR
     Indication: Immune thrombocytopenia
     Dosage: 637 MG, WEEKLY
     Route: 042
     Dates: start: 20231129
  2. RUXIENCE [Suspect]
     Active Substance: RITUXIMAB-PVVR
     Dosage: 637 MG, WEEKLY
     Route: 042
     Dates: start: 20231129
  3. RUXIENCE [Suspect]
     Active Substance: RITUXIMAB-PVVR
     Dosage: 637 MG
     Route: 042
     Dates: start: 20231207
  4. RUXIENCE [Suspect]
     Active Substance: RITUXIMAB-PVVR
     Dosage: 637 MG
     Route: 042
     Dates: start: 20231207
  5. RUXIENCE [Suspect]
     Active Substance: RITUXIMAB-PVVR
     Dosage: 690 MG
     Route: 042
     Dates: start: 20231214
  6. RUXIENCE [Suspect]
     Active Substance: RITUXIMAB-PVVR
     Dosage: 690 MG
     Route: 042
     Dates: start: 20231214
  7. RUXIENCE [Suspect]
     Active Substance: RITUXIMAB-PVVR
     Dosage: 637 MG
     Dates: start: 20231221

REACTIONS (6)
  - Weight increased [Unknown]
  - Restlessness [Unknown]
  - Headache [Not Recovered/Not Resolved]
  - Dehydration [Unknown]
  - Off label use [Unknown]
  - Product administration error [Unknown]

NARRATIVE: CASE EVENT DATE: 20230101
